FAERS Safety Report 6206898-9 (Version None)
Quarter: 2009Q2

REPORT INFORMATION
  Report Type: 
  Country: None (occurrence: None)
  Receive Date: 20090528
  Receipt Date: 20090515
  Transmission Date: 20091009
  Serious: Yes (Death, Hospitalization)
  Sender: FDA-Public Use
  Company Number: A0763853A

PATIENT
  Age: 64 Year
  Sex: Male
  Weight: 123.6 kg

DRUGS (13)
  1. AVANDIA [Suspect]
     Indication: DIABETES MELLITUS
     Dosage: 4MG PER DAY
     Route: 048
     Dates: start: 19990101, end: 20070101
  2. GLUCOPHAGE [Concomitant]
  3. PRECOSE [Concomitant]
  4. INSULIN [Concomitant]
  5. GLUCOTROL [Concomitant]
  6. METOPROLOL SUCCINATE [Concomitant]
  7. HYDROCHLOROTHIAZIDE [Concomitant]
  8. CLONAZEPAM [Concomitant]
  9. LEVOTHYROXINE SODIUM [Concomitant]
  10. LISINOPRIL [Concomitant]
  11. DILTIAZEM [Concomitant]
  12. ZETIA [Concomitant]
  13. SIMVASTATIN [Concomitant]

REACTIONS (5)
  - CARDIAC FAILURE CONGESTIVE [None]
  - CHRONIC OBSTRUCTIVE PULMONARY DISEASE [None]
  - MYOCARDIAL INFARCTION [None]
  - PNEUMONIA [None]
  - RENAL FAILURE [None]
